FAERS Safety Report 19652847 (Version 1)
Quarter: 2021Q3

REPORT INFORMATION
  Report Type: Spontaneous
  Country: IL (occurrence: IL)
  Receive Date: 20210803
  Receipt Date: 20210803
  Transmission Date: 20211014
  Serious: Yes (Other)
  Sender: FDA-Public Use
  Company Number: IL-TEVA-2021-IL-1938020

PATIENT
  Age: 51 Year
  Sex: Male

DRUGS (7)
  1. FOLIC ACID 5 MG [Concomitant]
  2. ETOPSIDE TEVA 1000 MG [Suspect]
     Active Substance: ETOPOSIDE
     Route: 065
  3. ALIMPTA [Concomitant]
  4. CISPLATIN. [Concomitant]
     Active Substance: CISPLATIN
  5. KEPRA 750 [Concomitant]
  6. OMEPRADEX CAPLETS 20 MG [Concomitant]
  7. DEXAMETHASONE. [Concomitant]
     Active Substance: DEXAMETHASONE

REACTIONS (3)
  - Seizure [Unknown]
  - Dissociation [Unknown]
  - Erythema [Unknown]
